FAERS Safety Report 8647072 (Version 4)
Quarter: 2014Q3

REPORT INFORMATION
  Report Type: Report from Study
  Country: FR (occurrence: FR)
  Receive Date: 20120703
  Receipt Date: 20140908
  Transmission Date: 20150326
  Serious: Yes (Hospitalization, Other)
  Sender: FDA-Public Use
  Company Number: FR-ACTELION-A-CH2011-57521

PATIENT
  Age: 9 Month
  Sex: Female
  Weight: 13.6 kg

DRUGS (13)
  1. ZAVESCA [Suspect]
     Active Substance: MIGLUSTAT
     Dosage: 50 MG, BID
     Route: 048
     Dates: start: 201203, end: 20140124
  2. ZAVESCA [Suspect]
     Active Substance: MIGLUSTAT
     Dosage: 50 MG, TID
     Route: 048
     Dates: start: 201203
  3. VITAMINS [Concomitant]
     Active Substance: VITAMINS
  4. RIVOTRIL [Concomitant]
     Active Substance: CLONAZEPAM
     Dosage: UNK
     Dates: start: 2013
  5. ZAVESCA [Suspect]
     Active Substance: MIGLUSTAT
     Indication: NIEMANN-PICK DISEASE
     Dosage: 50 MG, TID
     Route: 048
     Dates: start: 20100301
  6. MORPHINE [Concomitant]
     Active Substance: MORPHINE
  7. ZAVESCA [Suspect]
     Active Substance: MIGLUSTAT
     Dosage: 50 MG, BID
     Route: 048
     Dates: start: 201201, end: 201203
  8. LAROXYL [Concomitant]
     Active Substance: AMITRIPTYLINE
     Dosage: UNK
     Dates: start: 2010
  9. VITAMIN K1 [Concomitant]
     Active Substance: PHYTONADIONE
  10. ORAMORPH SR SUSTAINED RELEASE [Concomitant]
     Active Substance: MORPHINE SULFATE
     Dosage: UNK
     Dates: start: 2013
  11. BACLOFEN. [Concomitant]
     Active Substance: BACLOFEN
     Dosage: UNK
     Dates: start: 2013
  12. PARACETAMOL [Concomitant]
     Active Substance: ACETAMINOPHEN
  13. MOVICOL [Concomitant]
     Active Substance: POLYETHYLENE GLYCOL 3350\POTASSIUM CHLORIDE\SODIUM BICARBONATE\SODIUM CHLORIDE
     Dosage: UNK
     Dates: start: 2013

REACTIONS (19)
  - Neuropathy peripheral [Not Recovered/Not Resolved]
  - Niemann-Pick disease [Not Recovered/Not Resolved]
  - Nephrolithiasis [Not Recovered/Not Resolved]
  - Pain [Not Recovered/Not Resolved]
  - Tremor [Not Recovered/Not Resolved]
  - General physical health deterioration [Not Recovered/Not Resolved]
  - Muscle spasms [Not Recovered/Not Resolved]
  - Condition aggravated [Not Recovered/Not Resolved]
  - Convulsion [Recovered/Resolved]
  - Cerebellar syndrome [Not Recovered/Not Resolved]
  - Growth retardation [Not Recovered/Not Resolved]
  - Bronchiolitis [Recovered/Resolved]
  - Thrombocytopenia [Recovered/Resolved]
  - Epistaxis [Recovered/Resolved]
  - Sleep disorder [Not Recovered/Not Resolved]
  - Disease progression [Not Recovered/Not Resolved]
  - Diarrhoea [Recovered/Resolved]
  - Interstitial lung disease [Recovered/Resolved]
  - Dysarthria [Not Recovered/Not Resolved]

NARRATIVE: CASE EVENT DATE: 201003
